FAERS Safety Report 17027405 (Version 1)
Quarter: 2019Q4

REPORT INFORMATION
  Report Type: Spontaneous
  Country: US (occurrence: US)
  Receive Date: 20191010
  Receipt Date: 20191010
  Transmission Date: 20200122
  Serious: No
  Sender: FDA-Public Use
  Company Number: None

PATIENT
  Age: 63 Year
  Sex: Male

DRUGS (1)
  1. EPCLUSA [Suspect]
     Active Substance: SOFOSBUVIR\VELPATASVIR
     Indication: HEPATITIS C
     Route: 048
     Dates: start: 20190703

REACTIONS (4)
  - Hypotension [None]
  - Ammonia decreased [None]
  - Confusional state [None]
  - Blood pressure increased [None]

NARRATIVE: CASE EVENT DATE: 20191010
